FAERS Safety Report 10750458 (Version 1)
Quarter: 2015Q1

REPORT INFORMATION
  Report Type: Spontaneous
  Country: IT (occurrence: IT)
  Receive Date: 20150130
  Receipt Date: 20150130
  Transmission Date: 20150721
  Serious: Yes (Death, Life-Threatening)
  Sender: FDA-Public Use
  Company Number: IT-DRREDDYS-USA/ITL/15/0045673

PATIENT
  Age: 71 Year
  Sex: Female

DRUGS (2)
  1. DECITABINE. [Suspect]
     Active Substance: DECITABINE
     Indication: ACUTE MYELOID LEUKAEMIA
     Dosage: 20MG/M2/DAY
     Route: 042
     Dates: start: 20141110
  2. DECITABINE. [Suspect]
     Active Substance: DECITABINE
     Route: 042
     Dates: start: 20141210, end: 20141215

REACTIONS (7)
  - Respiratory failure [None]
  - Hepatic failure [Fatal]
  - Escherichia test positive [None]
  - Haematemesis [None]
  - Melaena [None]
  - Gastrointestinal haemorrhage [None]
  - Anal abscess [None]

NARRATIVE: CASE EVENT DATE: 20141230
